FAERS Safety Report 7792262-8 (Version None)
Quarter: 2011Q4

REPORT INFORMATION
  Report Type: 
  Country: None (occurrence: None)
  Receive Date: 20111003
  Receipt Date: 20110920
  Transmission Date: 20120403
  Serious: Yes (Hospitalization, Other)
  Sender: FDA-Public Use
  Company Number: US-ELI_LILLY_AND_COMPANY-US200910000175

PATIENT
  Sex: Female

DRUGS (13)
  1. PLAVIX [Concomitant]
     Indication: ANTICOAGULANT THERAPY
     Dosage: 75 MG, QD
  2. LISINOPRIL [Concomitant]
     Indication: BLOOD PRESSURE
     Dosage: 20 MG, QD
  3. FORTEO [Suspect]
     Dosage: 20 UG, DAILY (1/D)
     Route: 065
  4. FORTEO [Suspect]
     Indication: OSTEOPOROSIS
     Dosage: 20 UG, QD
     Route: 065
     Dates: start: 20090901
  5. CALCIUM CARBONATE [Concomitant]
     Dosage: UNK, QD
  6. FORTEO [Suspect]
     Dosage: 20 UG, DAILY (1/D)
     Route: 065
  7. CITALOPRAM HYDROBROMIDE [Concomitant]
     Dosage: 10 MG, QD
  8. FORTEO [Suspect]
     Dosage: 20 UG, QD
     Route: 065
  9. FORTEO [Suspect]
     Dosage: 20 UG, DAILY (1/D)
     Route: 065
  10. FORTEO [Suspect]
     Dosage: 20 UG, QD
     Route: 065
  11. ASPIRIN [Concomitant]
     Dosage: 81 MG, QD
  12. VITAMIN D [Concomitant]
     Dosage: UNK UNK, QD
  13. FLECAINIDE ACETATE [Concomitant]
     Dosage: 50 MG, BID

REACTIONS (13)
  - THINKING ABNORMAL [None]
  - MEMORY IMPAIRMENT [None]
  - DIZZINESS [None]
  - VISUAL IMPAIRMENT [None]
  - OVERDOSE [None]
  - CEREBROVASCULAR ACCIDENT [None]
  - THROMBOSIS [None]
  - ARTERIAL OCCLUSIVE DISEASE [None]
  - ABDOMINAL DISCOMFORT [None]
  - PAIN IN EXTREMITY [None]
  - INJECTION SITE HAEMATOMA [None]
  - INSOMNIA [None]
  - ARTHRALGIA [None]
